FAERS Safety Report 5999036-9 (Version None)
Quarter: 2008Q4

REPORT INFORMATION
  Report Type: 
  Country: None (occurrence: None)
  Receive Date: 20081213
  Receipt Date: 20080729
  Transmission Date: 20090506
  Serious: No
  Sender: FDA-Public Use
  Company Number: US-AMGEN-KDL297002

PATIENT
  Sex: Male

DRUGS (3)
  1. ENBREL [Suspect]
     Indication: ANKYLOSING SPONDYLITIS
     Route: 058
     Dates: start: 20080101
  2. METHOTREXATE [Concomitant]
     Route: 048
     Dates: start: 20080729
  3. EMLA [Concomitant]

REACTIONS (5)
  - FALL [None]
  - IMPAIRED HEALING [None]
  - INJECTION SITE REACTION [None]
  - INJECTION SITE URTICARIA [None]
  - LOWER LIMB FRACTURE [None]
